FAERS Safety Report 24726835 (Version 1)
Quarter: 2024Q4

REPORT INFORMATION
  Report Type: Spontaneous
  Country: CN (occurrence: CN)
  Receive Date: 20241212
  Receipt Date: 20241212
  Transmission Date: 20250115
  Serious: Yes (Other)
  Sender: PFIZER
  Company Number: CN-PFIZER INC-PV202400160098

PATIENT
  Age: 16 Year
  Sex: Female
  Weight: 51.5 kg

DRUGS (2)
  1. CYTARABINE [Suspect]
     Active Substance: CYTARABINE
     Indication: Acute myeloid leukaemia
     Dosage: 1.6 G, 1X/DAY
     Route: 041
     Dates: start: 20241126, end: 20241126
  2. CLADRIBINE [Concomitant]
     Active Substance: CLADRIBINE
     Indication: Chemotherapy
     Dosage: 8 MG, 1X/DAY
     Route: 041
     Dates: start: 20241126, end: 20241126

REACTIONS (5)
  - Pyrexia [Recovering/Resolving]
  - Nausea [Recovering/Resolving]
  - Vomiting [Recovering/Resolving]
  - White blood cell count increased [Recovering/Resolving]
  - Neutrophil count increased [Recovering/Resolving]

NARRATIVE: CASE EVENT DATE: 20241126
